FAERS Safety Report 6442172-3 (Version None)
Quarter: 2009Q4

REPORT INFORMATION
  Report Type: 
  Country: None (occurrence: None)
  Receive Date: 20091112
  Receipt Date: 20091102
  Transmission Date: 20100525
  Serious: Yes (Other)
  Sender: FDA-Public Use
  Company Number: ADR46852009

PATIENT
  Age: 58 Year
  Sex: Male

DRUGS (7)
  1. SIMVASTATIN [Suspect]
     Dosage: 10 MG
     Route: 048
     Dates: start: 20070125, end: 20070127
  2. AMLODIPINE [Concomitant]
  3. GLIPIZIDE [Concomitant]
  4. METFORMIN [Concomitant]
  5. MOXONIDINE [Concomitant]
  6. ROSIGLITAZONE [Concomitant]
  7. VALSARTAN [Concomitant]

REACTIONS (1)
  - NIGHTMARE [None]
